FAERS Safety Report 6813841-8 (Version None)
Quarter: 2010Q3

REPORT INFORMATION
  Report Type: 
  Country: None (occurrence: None)
  Receive Date: 20100702
  Receipt Date: 20100624
  Transmission Date: 20110219
  Serious: Yes (Hospitalization)
  Sender: FDA-Public Use
  Company Number: US-BIOGENIDEC-2010BI021499

PATIENT
  Age: 65 Year
  Sex: Female

DRUGS (3)
  1. AVONEX [Suspect]
     Indication: MULTIPLE SCLEROSIS
     Route: 030
     Dates: start: 19991001, end: 20070501
  2. AVONEX [Suspect]
     Route: 030
     Dates: start: 20080101, end: 20090101
  3. AVONEX [Suspect]
     Route: 030
     Dates: start: 20100525

REACTIONS (1)
  - MYOCARDIAL INFARCTION [None]
